FAERS Safety Report 6428467-8 (Version None)
Quarter: 2009Q4

REPORT INFORMATION
  Report Type: 
  Country: None (occurrence: None)
  Receive Date: 20091105
  Receipt Date: 20091104
  Transmission Date: 20100525
  Serious: Yes (Hospitalization)
  Sender: FDA-Public Use
  Company Number: B0600857A

PATIENT
  Age: 77 Year
  Sex: Male

DRUGS (8)
  1. AUGMENTIN [Suspect]
     Indication: UPPER RESPIRATORY TRACT INFECTION
     Route: 048
     Dates: start: 20090701
  2. PLAVIX [Concomitant]
     Route: 065
  3. CRESTOR [Concomitant]
     Route: 065
  4. TRIATEC [Concomitant]
     Route: 065
  5. LASILIX [Concomitant]
     Route: 065
  6. SERETIDE [Concomitant]
     Route: 065
  7. FLAGYL [Concomitant]
     Route: 065
     Dates: start: 20090701
  8. SOLU-MEDROL [Concomitant]
     Route: 065
     Dates: start: 20090701

REACTIONS (6)
  - COLITIS [None]
  - DIARRHOEA [None]
  - DYSENTERY [None]
  - GENERAL PHYSICAL HEALTH DETERIORATION [None]
  - INFLAMMATION [None]
  - PYREXIA [None]
